FAERS Safety Report 8007053-2 (Version None)
Quarter: 2011Q4

REPORT INFORMATION
  Report Type: 
  Country: None (occurrence: None)
  Receive Date: 20111227
  Receipt Date: 20111219
  Transmission Date: 20120403
  Serious: Yes (Life-Threatening, Hospitalization, Other)
  Sender: FDA-Public Use
  Company Number: US-BAYER-2011-058340

PATIENT
  Age: 29 Year
  Sex: Female
  Weight: 74.83 kg

DRUGS (8)
  1. BACTRIUM DS [Concomitant]
     Indication: SINUSITIS
     Dosage: UNK
     Dates: start: 20080715
  2. ZYRTEC [Concomitant]
     Indication: RHINITIS SEASONAL
  3. NEXIUM [Concomitant]
     Indication: GASTROOESOPHAGEAL REFLUX DISEASE
     Dosage: UNK
     Dates: start: 20100125
  4. YASMIN [Suspect]
     Indication: CONTRACEPTION
     Dosage: UNK
     Route: 048
     Dates: start: 20050701, end: 20080701
  5. FLAXSEED OIL [Concomitant]
     Indication: HYPERTENSION
     Dosage: UNK
     Dates: start: 20090323
  6. DROSPIRENONE AND ETHINYL ESTRADIOL [Suspect]
     Indication: CONTRACEPTION
     Dosage: UNK
     Route: 048
     Dates: start: 20080701, end: 20090201
  7. NITROGLYCERIN [Concomitant]
     Indication: CHEST PAIN
     Dosage: UNK UNK, PRN
     Dates: start: 20090409
  8. ATIVAN [Concomitant]
     Indication: ANXIETY
     Dosage: 3 TIMES DAILY AS NEEDED
     Dates: start: 20090420

REACTIONS (11)
  - GALLBLADDER DISORDER [None]
  - HYPERTENSION [None]
  - FEAR [None]
  - GALLBLADDER PAIN [None]
  - PAIN [None]
  - INJURY [None]
  - CHOLECYSTITIS ACUTE [None]
  - BUNDLE BRANCH BLOCK LEFT [None]
  - EMOTIONAL DISTRESS [None]
  - ANXIETY [None]
  - ANHEDONIA [None]
